FAERS Safety Report 9995017 (Version 2)
Quarter: 2014Q2

REPORT INFORMATION
  Report Type: Spontaneous
  Country: IT (occurrence: IT)
  Receive Date: 20140311
  Receipt Date: 20140424
  Transmission Date: 20141212
  Serious: Yes (Other)
  Sender: FDA-Public Use
  Company Number: IT-UCBSA-114361

PATIENT
  Age: 40 Year
  Sex: Male

DRUGS (2)
  1. KEPPRA [Suspect]
     Dosage: 500 MG 60 FILM COATED TABLETS
     Route: 048
     Dates: start: 20140124, end: 20140124
  2. TEGRETOL [Suspect]
     Dosage: 400 MG
     Route: 048
     Dates: start: 20140124, end: 20140124

REACTIONS (2)
  - Epilepsy [Recovered/Resolved]
  - Underdose [Recovered/Resolved]
